FAERS Safety Report 6135748-4 (Version None)
Quarter: 2009Q1

REPORT INFORMATION
  Report Type: 
  Country: None (occurrence: None)
  Receive Date: 20090327
  Receipt Date: 20090319
  Transmission Date: 20090719
  Serious: Yes (Other)
  Sender: FDA-Public Use
  Company Number: PHHY2009GB10594

PATIENT
  Sex: Female

DRUGS (2)
  1. CLOZARIL [Suspect]
     Indication: SCHIZOPHRENIA
     Dosage: UNK
     Dates: start: 20070509
  2. EPILIM [Concomitant]

REACTIONS (5)
  - ANTIPSYCHOTIC DRUG LEVEL INCREASED [None]
  - CONVULSION [None]
  - DEHYDRATION [None]
  - EYE DISORDER [None]
  - LIVER DISORDER [None]
